FAERS Safety Report 8303424-5 (Version None)
Quarter: 2012Q2

REPORT INFORMATION
  Report Type: 
  Country: None (occurrence: None)
  Receive Date: 20120423
  Receipt Date: 20120413
  Transmission Date: 20120825
  Serious: No
  Sender: FDA-Public Use
  Company Number: US-PFIZER INC-2011146045

PATIENT
  Sex: Female
  Weight: 73.5 kg

DRUGS (11)
  1. PREMARIN [Suspect]
     Dosage: 0.3 MG, 1X/DAY
     Route: 048
     Dates: start: 20010101
  2. DIAZEPAM [Concomitant]
     Indication: MUSCLE DISORDER
     Dosage: 5 MG, AS NEEDED
     Dates: start: 19800101
  3. DIAZEPAM [Concomitant]
     Indication: MUSCULOSKELETAL DISCOMFORT
  4. PRILOSEC [Concomitant]
     Indication: HERNIA
     Dosage: UNK
     Route: 048
     Dates: start: 19960101
  5. ASPIRIN [Concomitant]
     Dosage: UNK
  6. DIAZEPAM [Concomitant]
     Dosage: UNK
  7. PREMARIN [Suspect]
     Indication: HORMONE REPLACEMENT THERAPY
     Dosage: 0.625 MG, 1X/DAY
     Route: 048
     Dates: start: 19970101
  8. PREMARIN [Suspect]
     Dosage: 0.3 MG, 1 TAB PER ORALLY Q DAY
     Route: 048
     Dates: end: 20110601
  9. PREMARIN [Suspect]
     Dosage: 0.625 MG, UNK
     Route: 048
  10. GAVISCON [Concomitant]
     Dosage: UNK, DAILY
  11. PRILOSEC [Concomitant]
     Indication: HIATUS HERNIA
     Dosage: UNK
     Route: 048

REACTIONS (8)
  - ACTIVITIES OF DAILY LIVING IMPAIRED [None]
  - HOT FLUSH [None]
  - STRESS [None]
  - FEELING ABNORMAL [None]
  - IRRITABILITY [None]
  - INAPPROPRIATE SCHEDULE OF DRUG ADMINISTRATION [None]
  - DISTURBANCE IN ATTENTION [None]
  - CONFUSIONAL STATE [None]
